FAERS Safety Report 8567881-1 (Version None)
Quarter: 2012Q3

REPORT INFORMATION
  Report Type: 
  Country: None (occurrence: None)
  Receive Date: 20120803
  Receipt Date: 20120725
  Transmission Date: 20120928
  Serious: Yes (Hospitalization, Disabling)
  Sender: FDA-Public Use
  Company Number: FR-FRI-1000031136

PATIENT
  Sex: Female
  Weight: 60 kg

DRUGS (3)
  1. CITALOPRAM HYDROBROMIDE [Suspect]
     Indication: DEPRESSION
     Dosage: 40 MG
     Route: 048
     Dates: start: 20080101
  2. ATARAX [Concomitant]
  3. DIAZEPAM [Concomitant]

REACTIONS (5)
  - FALL [None]
  - ANKLE FRACTURE [None]
  - WRIST FRACTURE [None]
  - OSTEOPENIA [None]
  - COMPLICATED FRACTURE [None]
